FAERS Safety Report 25125549 (Version 2)
Quarter: 2025Q2

REPORT INFORMATION
  Report Type: Spontaneous
  Country: US (occurrence: US)
  Receive Date: 20250326
  Receipt Date: 20250408
  Transmission Date: 20250716
  Serious: Yes (Hospitalization, Other)
  Sender: BRISTOL MYERS SQUIBB
  Company Number: US-BRISTOL-MYERS SQUIBB COMPANY-2025-040802

PATIENT
  Age: 70 Year
  Sex: Female

DRUGS (2)
  1. NIVOLUMAB [Suspect]
     Active Substance: NIVOLUMAB
     Indication: Sarcoma metastatic
  2. IPILIMUMAB [Suspect]
     Active Substance: IPILIMUMAB
     Indication: Sarcoma metastatic

REACTIONS (3)
  - Immune-mediated myocarditis [Unknown]
  - Immune-mediated myasthenia gravis [Unknown]
  - Off label use [Unknown]
